FAERS Safety Report 14105909 (Version 1)
Quarter: 2017Q4

REPORT INFORMATION
  Report Type: Spontaneous
  Country: US (occurrence: US)
  Receive Date: 20171018
  Receipt Date: 20171018
  Transmission Date: 20180321
  Serious: No
  Sender: FDA-Public Use
  Company Number: US-AMGEN-USASP2016144015

PATIENT
  Age: 70 Year
  Sex: Female

DRUGS (9)
  1. ARIMIDEX [Concomitant]
     Active Substance: ANASTROZOLE
  2. AMLODIPINE [Concomitant]
     Active Substance: AMLODIPINE BESYLATE
  3. BABY ASPIRIN [Concomitant]
     Active Substance: ASPIRIN
  4. PRAVASTATIN. [Concomitant]
     Active Substance: PRAVASTATIN
  5. PROLIA [Suspect]
     Active Substance: DENOSUMAB
     Indication: OSTEOPOROSIS
     Dosage: 60 MG, Q6MO
     Route: 058
     Dates: start: 201403, end: 2016
  6. VITAMIN D [Concomitant]
     Active Substance: CHOLECALCIFEROL
  7. LOSARTAN POTASICO [Concomitant]
     Active Substance: LOSARTAN
  8. CARVEDILOL. [Concomitant]
     Active Substance: CARVEDILOL
  9. ASPIRIN. [Concomitant]
     Active Substance: ASPIRIN

REACTIONS (1)
  - Arthralgia [Unknown]

NARRATIVE: CASE EVENT DATE: 2016
